FAERS Safety Report 17439753 (Version 1)
Quarter: 2020Q1

REPORT INFORMATION
  Report Type: Spontaneous
  Country: US (occurrence: US)
  Receive Date: 20200219
  Receipt Date: 20200219
  Transmission Date: 20200409
  Serious: Yes (Disabling)
  Sender: FDA-Public Use
  Company Number: None

PATIENT
  Age: 86 Year
  Sex: Male
  Weight: 87.75 kg

DRUGS (10)
  1. I-CAP [Concomitant]
  2. MULTI-VITAMIN [Concomitant]
     Active Substance: .ALPHA.-TOCOPHEROL ACETATE, DL-\ASCORBIC ACID\CYANOCOBALAMIN\FLUORIDE ION\FOLIC ACID\NIACIN\PYRIDOXINE\RIBOFLAVIN\THIAMINE\VITAMIN A\VITAMIN D
  3. KERALAC [Suspect]
     Active Substance: UREA
     Indication: HYPERKERATOSIS
     Route: 061
     Dates: start: 20191112, end: 20191120
  4. ASPIRIN 81 [Concomitant]
     Active Substance: ASPIRIN
  5. METOPROLOL TARTRATE. [Concomitant]
     Active Substance: METOPROLOL TARTRATE
  6. VALSARTAN. [Concomitant]
     Active Substance: VALSARTAN
  7. FUROSEMIDE. [Concomitant]
     Active Substance: FUROSEMIDE
  8. AMLODIPINE BESYLATE. [Concomitant]
     Active Substance: AMLODIPINE BESYLATE
  9. LEVOTHYROXINE. [Concomitant]
     Active Substance: LEVOTHYROXINE
  10. HYDROXYUREA. [Concomitant]
     Active Substance: HYDROXYUREA

REACTIONS (7)
  - Vertigo [None]
  - Fall [None]
  - Rib fracture [None]
  - Dizziness [None]
  - Pain [None]
  - Insomnia [None]
  - Erythema [None]

NARRATIVE: CASE EVENT DATE: 20191120
